FAERS Safety Report 19944573 (Version 1)
Quarter: 2021Q4

REPORT INFORMATION
  Report Type: 
  Country: US (occurrence: US)
  Receive Date: 20211011
  Receipt Date: 20211011
  Transmission Date: 20220303
  Serious: No
  Sender: FDA-Public Use
  Company Number: US-C B FLEET CO INC-202105-US-001811

PATIENT
  Age: 56 Year
  Sex: Female

DRUGS (1)
  1. MONISTAT 1 COMBINATION PACK [Suspect]
     Active Substance: MICONAZOLE NITRATE
     Indication: Fungal infection
     Dosage: USED 1 DOSE

REACTIONS (4)
  - Chemical burn of genitalia [Recovering/Resolving]
  - Vulvovaginal burning sensation [Recovering/Resolving]
  - Vulvovaginal pain [Recovering/Resolving]
  - Vaginal mucosal blistering [Recovering/Resolving]
